FAERS Safety Report 6740070-9 (Version None)
Quarter: 2010Q2

REPORT INFORMATION
  Report Type: 
  Country: None (occurrence: None)
  Receive Date: 20100525
  Receipt Date: 20090424
  Transmission Date: 20101027
  Serious: No
  Sender: FDA-Public Use
  Company Number: A0780576A

PATIENT
  Age: 66 Year
  Sex: Male

DRUGS (4)
  1. BACTROBAN [Suspect]
     Indication: PROPHYLAXIS
     Dosage: 1APP TWICE PER DAY
     Route: 045
     Dates: start: 20090422
  2. SYNTHROID [Concomitant]
  3. TYLENOL [Concomitant]
  4. VITAMIN D [Concomitant]

REACTIONS (2)
  - DRY EYE [None]
  - DYSGEUSIA [None]
